FAERS Safety Report 4394303-7 (Version None)
Quarter: 2004Q3

REPORT INFORMATION
  Report Type: 
  Country: None (occurrence: None)
  Receive Date: 20040707
  Receipt Date: 20040628
  Transmission Date: 20050211
  Serious: Yes (Other)
  Sender: FDA-Public Use
  Company Number: SUS1-2004-00387

PATIENT
  Age: 4 Year
  Sex: Male

DRUGS (1)
  1. ADDERALL XR (AMPHETAMINE ASPARTATE, AMPHETAMINE SULFATE, DEXTROAMPHETA [Suspect]
     Indication: ATTENTION DEFICIT/HYPERACTIVITY DISORDER
     Dosage: 30 MG ONE TIME, ORAL
     Route: 048
     Dates: start: 20040626, end: 20040626

REACTIONS (4)
  - ABNORMAL BEHAVIOUR [None]
  - INSOMNIA [None]
  - MEDICATION ERROR [None]
  - MENTAL IMPAIRMENT [None]
